FAERS Safety Report 23909379 (Version 1)
Quarter: 2024Q2

REPORT INFORMATION
  Report Type: Spontaneous
  Country: US (occurrence: None)
  Receive Date: 20240525
  Receipt Date: 20240525
  Transmission Date: 20240716
  Serious: Yes (unspecified)
  Sender: FDA-Public Use
  Company Number: None

PATIENT
  Age: 72 Year
  Sex: Male
  Weight: 71.55 kg

DRUGS (3)
  1. EPCLUSA [Suspect]
     Active Substance: SOFOSBUVIR\VELPATASVIR
     Indication: Hepatitis C
     Dosage: OTHER QUANTITY : 1 TABLET(S);?FREQUENCY : DAILY;?
     Route: 048
     Dates: start: 20240308, end: 20240504
  2. MEN^S MULTI 40+ WHOLE FOOD MULTIVITAMIN [Concomitant]
  3. MEGAGOOD BLOOD CUILDER [Concomitant]

REACTIONS (5)
  - White blood cell count [None]
  - Haemoglobin decreased [None]
  - Fatigue [None]
  - Headache [None]
  - Vertigo [None]

NARRATIVE: CASE EVENT DATE: 20240420
